FAERS Safety Report 10863619 (Version 1)
Quarter: 2015Q1

REPORT INFORMATION
  Report Type: Spontaneous
  Country: US (occurrence: US)
  Receive Date: 20150223
  Receipt Date: 20150223
  Transmission Date: 20150721
  Serious: No
  Sender: FDA-Public Use
  Company Number: US-PFIZER INC-2015062811

PATIENT
  Age: 72 Year
  Sex: Male
  Weight: 95.69 kg

DRUGS (8)
  1. ADVIL [Concomitant]
     Active Substance: IBUPROFEN
     Dosage: 0.5 MG, 1X/DAY(ONE EVERY NIGHT)
  2. SUTENT [Suspect]
     Active Substance: SUNITINIB MALATE
     Indication: RENAL CANCER
     Dosage: 37.5 MG, CYCLIC (ONCE A DAY FOR 4 WEEK AND THEN TWO WEEKS OFF)
     Dates: start: 201409
  3. LISINOPRIL. [Concomitant]
     Active Substance: LISINOPRIL
     Dosage: 5 MG, 1X/DAY
  4. NOVOLIN [Concomitant]
     Active Substance: INSULIN HUMAN
     Dosage: 15 IU, 3X/DAY
  5. COREG [Concomitant]
     Active Substance: CARVEDILOL
     Dosage: 6.25 MG, 2X/DAY
  6. IMDUR [Concomitant]
     Active Substance: ISOSORBIDE MONONITRATE
     Dosage: 30 MG, 1X/DAY
  7. LANTUS [Concomitant]
     Active Substance: INSULIN GLARGINE
     Dosage: 100 UNIT; 38 UNITS AT NIGHT
  8. FLOMAX [Concomitant]
     Active Substance: TAMSULOSIN HYDROCHLORIDE
     Dosage: 0.4 MG, 1X/DAY

REACTIONS (5)
  - Nausea [Recovering/Resolving]
  - Night sweats [Recovering/Resolving]
  - Hyperhidrosis [Unknown]
  - Dysgeusia [Recovering/Resolving]
  - Rash [Unknown]
